FAERS Safety Report 9928139 (Version 1)
Quarter: 2014Q1

REPORT INFORMATION
  Report Type: Spontaneous
  Country: US (occurrence: None)
  Receive Date: 20140226
  Receipt Date: 20140226
  Transmission Date: 20141002
  Serious: Yes (Other)
  Sender: FDA-Public Use
  Company Number: None

PATIENT
  Age: 60 Year
  Sex: Female
  Weight: 72.58 kg

DRUGS (2)
  1. LEVOFLOXACIN [Suspect]
     Indication: COUGH
     Route: 048
     Dates: start: 20140110, end: 20140121
  2. LEVOFLOXACIN [Suspect]
     Indication: SINUSITIS
     Route: 048
     Dates: start: 20140110, end: 20140121

REACTIONS (10)
  - Arthralgia [None]
  - Musculoskeletal discomfort [None]
  - Joint range of motion decreased [None]
  - Musculoskeletal pain [None]
  - Pain in extremity [None]
  - Muscle spasms [None]
  - Joint crepitation [None]
  - Hypertension [None]
  - Arthritis [None]
  - Inflammation [None]
